FAERS Safety Report 8477158-0 (Version None)
Quarter: 2012Q2

REPORT INFORMATION
  Report Type: 
  Country: None (occurrence: None)
  Receive Date: 20120629
  Receipt Date: 20120626
  Transmission Date: 20120825
  Serious: No
  Sender: FDA-Public Use
  Company Number: US-PFIZER INC-2012135437

PATIENT
  Sex: Male
  Weight: 105.67 kg

DRUGS (2)
  1. TIKOSYN [Suspect]
     Indication: VENTRICULAR TACHYCARDIA
     Dosage: 500 UG, 2X/DAY
     Route: 048
     Dates: start: 20120528
  2. ATENOLOL [Concomitant]
     Indication: HYPERTENSION
     Dosage: UNK

REACTIONS (2)
  - HYPERHIDROSIS [None]
  - DRUG PRESCRIBING ERROR [None]
